FAERS Safety Report 9479361 (Version 4)
Quarter: 2014Q1

REPORT INFORMATION
  Report Type: Spontaneous
  Country: US (occurrence: US)
  Receive Date: 20130827
  Receipt Date: 20140218
  Transmission Date: 20141002
  Serious: No
  Sender: FDA-Public Use
  Company Number: US-PFIZER INC-2013243750

PATIENT
  Age: 59 Year
  Sex: Female

DRUGS (14)
  1. XELJANZ [Suspect]
     Indication: RHEUMATOID ARTHRITIS
     Dosage: 5 MG, 2X/DAY
     Route: 048
     Dates: start: 201302
  2. XELJANZ [Suspect]
     Dosage: 5 MG, 1X/DAY
  3. ADVAIR DISKUS [Concomitant]
     Dosage: UNK
  4. METHOTREXATE [Concomitant]
     Dosage: 2.5 MG, UNK
  5. LEFLUNOMIDE [Concomitant]
     Dosage: UNK
  6. PREDNISONE [Concomitant]
     Dosage: 5 MG, UNK
  7. FISH OIL [Concomitant]
     Dosage: UNK
  8. VITAMIN C [Concomitant]
     Dosage: UNK
  9. CALCIUM [Concomitant]
     Dosage: UNK
  10. POTASSIUM CHLORIDE [Concomitant]
     Dosage: 10 MEQ, UNK
  11. LOSARTAN [Concomitant]
     Dosage: 50 MG, UNK
  12. FOLIC ACID [Concomitant]
     Dosage: 1 MG, UNK
  13. SPIRONOLACTONE [Concomitant]
     Dosage: 500/50 MG
  14. ADVAIR [Concomitant]
     Dosage: UNK

REACTIONS (5)
  - Somnolence [Unknown]
  - Fatigue [Unknown]
  - Lymphocyte count decreased [Recovered/Resolved]
  - Hepatic enzyme increased [Unknown]
  - Drug ineffective [Unknown]
